FAERS Safety Report 17928512 (Version 1)
Quarter: 2020Q2

REPORT INFORMATION
  Report Type: Spontaneous
  Country: US (occurrence: US)
  Receive Date: 20200622
  Receipt Date: 20200622
  Transmission Date: 20200714
  Serious: Yes (Other)
  Sender: FDA-Public Use
  Company Number: None

PATIENT
  Age: 54 Year
  Sex: Female
  Weight: 50.8 kg

DRUGS (1)
  1. PROGESTERONE. [Suspect]
     Active Substance: PROGESTERONE
     Indication: PROGESTERONE DECREASED
     Route: 048
     Dates: start: 20200510

REACTIONS (7)
  - Breast pain [None]
  - Insurance issue [None]
  - Product substitution issue [None]
  - Fluid retention [None]
  - Mood swings [None]
  - Somnolence [None]
  - Dizziness [None]

NARRATIVE: CASE EVENT DATE: 20200510
